FAERS Safety Report 20359138 (Version 2)
Quarter: 2022Q1

REPORT INFORMATION
  Report Type: Report from Study
  Country: US (occurrence: US)
  Receive Date: 20220120
  Receipt Date: 20220201
  Transmission Date: 20220423
  Serious: Yes (Other)
  Sender: FDA-Public Use
  Company Number: US-JNJFOC-20220124370

PATIENT
  Age: 23 Year
  Sex: Male
  Weight: 74.910 kg

DRUGS (3)
  1. INFLIXIMAB [Suspect]
     Active Substance: INFLIXIMAB
     Indication: Inflammatory bowel disease
     Route: 042
     Dates: start: 20110907
  2. INFLIXIMAB [Suspect]
     Active Substance: INFLIXIMAB
     Dosage: LAST DOSE RECEIVED ON 17 DEC 2020
     Route: 042
     Dates: start: 2020, end: 2021
  3. INFLECTRA [Concomitant]
     Active Substance: INFLIXIMAB-DYYB

REACTIONS (1)
  - Infected cyst [Recovered/Resolved]

NARRATIVE: CASE EVENT DATE: 20210801
